FAERS Safety Report 17563693 (Version 2)
Quarter: 2020Q3

REPORT INFORMATION
  Report Type: Spontaneous
  Country: US (occurrence: US)
  Receive Date: 20200320
  Receipt Date: 20200709
  Transmission Date: 20201102
  Serious: Yes (Other)
  Sender: FDA-Public Use
  Company Number: US-DRREDDYS-USA/USA/20/0120831

PATIENT
  Age: 13 Year
  Sex: Male

DRUGS (4)
  1. TACROLIMUS. [Suspect]
     Active Substance: TACROLIMUS
     Indication: PROPHYLAXIS AGAINST GRAFT VERSUS HOST DISEASE
     Dosage: STARTING DAY +5 FOR GVHD PROPHYLAXIS WITH GOAL LEVEL 10?15
     Route: 065
  2. MYCOPHENOLIC ACID. [Concomitant]
     Active Substance: MYCOPHENOLIC ACID
     Indication: PROPHYLAXIS AGAINST GRAFT VERSUS HOST DISEASE
     Dosage: DAY +5 TO +35
     Route: 065
  3. GRANULOCYTE COLONY?STIMULATING FACTOR [Concomitant]
     Active Substance: GRANULOCYTE COLONY-STIMULATING FACTOR NOS
     Indication: PRODUCT USED FOR UNKNOWN INDICATION
     Dosage: HE RECEIVED BIWEEKLY IVIG DUE TO POST?TRANSPLANT IMMUNOSUPPRESSION UNTIL DAY +100 AND THEN MONTHLY U
     Route: 065
  4. IMMUNOGLOBULIN [Concomitant]
     Indication: IMMUNOSUPPRESSANT DRUG THERAPY
     Dosage: HE RECEIVED BIWEEKLY IVIG DUE TO POST?TRANSPLANT IMMUNOSUPPRESSION UNTIL DAY +100 AND THEN MONTHLY U

REACTIONS (2)
  - Nephropathy toxic [Unknown]
  - Blood creatinine increased [Unknown]
